APPROVED DRUG PRODUCT: TIZANIDINE HYDROCHLORIDE
Active Ingredient: TIZANIDINE HYDROCHLORIDE
Strength: EQ 2MG BASE
Dosage Form/Route: TABLET;ORAL
Application: A207170 | Product #001
Applicant: PH HEALTH LTD
Approved: Jan 26, 2017 | RLD: No | RS: No | Type: DISCN